FAERS Safety Report 16238466 (Version 1)
Quarter: 2019Q2

REPORT INFORMATION
  Report Type: Spontaneous
  Country: ES (occurrence: ES)
  Receive Date: 20190425
  Receipt Date: 20190425
  Transmission Date: 20190711
  Serious: Yes (Other)
  Sender: FDA-Public Use
  Company Number: ES-PFIZER INC-2019176311

PATIENT
  Age: 68 Year
  Sex: Male
  Weight: 75 kg

DRUGS (1)
  1. CELECOXIB. [Suspect]
     Active Substance: CELECOXIB
     Indication: PNEUMONIA
     Dosage: 200 MG (4 TOTAL)
     Route: 048
     Dates: start: 20171101, end: 20171104

REACTIONS (2)
  - Product use in unapproved indication [Unknown]
  - Tongue oedema [Recovered/Resolved]

NARRATIVE: CASE EVENT DATE: 20171101
